FAERS Safety Report 24070510 (Version 1)
Quarter: 2024Q3

REPORT INFORMATION
  Report Type: Report from Study
  Country: US (occurrence: US)
  Receive Date: 20240710
  Receipt Date: 20240710
  Transmission Date: 20241017
  Serious: No
  Sender: ROCHE
  Company Number: US-ROCHE-3566884

PATIENT
  Age: 52 Year
  Sex: Male
  Weight: 92.99 kg

DRUGS (3)
  1. VABYSMO [Suspect]
     Active Substance: FARICIMAB\FARICIMAB-SVOA
     Indication: Diabetic retinopathy
     Route: 050
     Dates: start: 2020, end: 2023
  2. VABYSMO [Suspect]
     Active Substance: FARICIMAB\FARICIMAB-SVOA
     Indication: Macular oedema
     Route: 050
     Dates: start: 2024
  3. LUCENTIS [Suspect]
     Active Substance: RANIBIZUMAB
     Indication: Product used for unknown indication
     Route: 050
     Dates: start: 2020

REACTIONS (2)
  - Intraocular pressure increased [Not Recovered/Not Resolved]
  - Eye disorder [Unknown]

NARRATIVE: CASE EVENT DATE: 20220101
